FAERS Safety Report 6010316-3 (Version None)
Quarter: 2008Q4

REPORT INFORMATION
  Report Type: 
  Country: None (occurrence: None)
  Receive Date: 20081218
  Receipt Date: 20080619
  Transmission Date: 20090506
  Serious: No
  Sender: FDA-Public Use
  Company Number: A0733929A

PATIENT
  Sex: Male

DRUGS (2)
  1. FLUTICASONE PROPIONATE [Suspect]
     Indication: ILL-DEFINED DISORDER
     Dosage: 50MCG PER DAY
     Route: 045
     Dates: start: 20080611, end: 20080618
  2. ASPIRIN [Concomitant]

REACTIONS (3)
  - COUGH [None]
  - DRY MOUTH [None]
  - NASAL ODOUR [None]
